FAERS Safety Report 17368844 (Version 1)
Quarter: 2020Q1

REPORT INFORMATION
  Report Type: Spontaneous
  Country: DE (occurrence: DE)
  Receive Date: 20200204
  Receipt Date: 20200204
  Transmission Date: 20200409
  Serious: Yes (Hospitalization)
  Sender: FDA-Public Use
  Company Number: DE-SA-2020SA021557

PATIENT
  Age: 75 Year
  Sex: Male
  Weight: 87 kg

DRUGS (9)
  1. LANTUS SOLOSTAR [Suspect]
     Active Substance: INSULIN GLARGINE
     Dosage: 20 IU, QD,1 INJECTION DAILY
     Route: 058
     Dates: start: 20191215
  2. ATORVASTATIN [Concomitant]
     Active Substance: ATORVASTATIN
     Dosage: 80 MG, QD,(0 - 0 - 1)
     Route: 065
     Dates: start: 20190123
  3. NITRENDIPINE [Concomitant]
     Active Substance: NITRENDIPINE
     Dosage: UNK UNK, QD (1 - 0 - 0)
     Route: 065
     Dates: start: 20190123
  4. EZETIMIBE. [Concomitant]
     Active Substance: EZETIMIBE
     Dosage: 10 MG, QD,(0 - 0 - 1)
     Route: 065
     Dates: start: 20190123
  5. ALLOPURINOL. [Concomitant]
     Active Substance: ALLOPURINOL
     Dosage: 1 UNK,(1 - 0-0)
     Route: 065
     Dates: start: 20190123
  6. CLOPIDOGREL [Concomitant]
     Active Substance: CLOPIDOGREL BISULFATE
     Dosage: 150 MG, QD,(1 - 0 - 1)
     Route: 065
     Dates: start: 20190123
  7. MONTELUKAST [Concomitant]
     Active Substance: MONTELUKAST SODIUM
     Dosage: 10 MG, QD,(0 - 0 - 1)
     Route: 065
     Dates: start: 20190123
  8. URAPIDIL STRAGEN [Concomitant]
     Dosage: 60 MG, QD,(1 - 0 - 1)
     Route: 065
     Dates: start: 20190123
  9. TORASEMIDE [Concomitant]
     Active Substance: TORSEMIDE
     Dosage: 10 MG, QD,(1 - 0 - 0)
     Route: 065
     Dates: start: 20190123

REACTIONS (3)
  - Myalgia [Unknown]
  - Inflammatory marker increased [Unknown]
  - Dermatitis allergic [Unknown]

NARRATIVE: CASE EVENT DATE: 20191222
